FAERS Safety Report 11054323 (Version 1)
Quarter: 2015Q2

REPORT INFORMATION
  Report Type: Spontaneous
  Country: NO (occurrence: None)
  Receive Date: 20150420
  Receipt Date: 20150420
  Transmission Date: 20150821
  Serious: Yes (Other)
  Sender: FDA-Public Use
  Company Number: BD-2015-0292

PATIENT
  Sex: Female

DRUGS (5)
  1. PARACETAMOL [Concomitant]
     Active Substance: ACETAMINOPHEN
  2. BUPIVACAINE AND ADRENALIN (BUPIVACAINE HYDROCHLORIDE, EPUNEPHRINE) [Concomitant]
  3. DICLOFENAC [Concomitant]
     Active Substance: DICLOFENAC
  4. BUPIVACAINE W/FENTANYL (BUPIVACAINE, FENTANYL) [Concomitant]
  5. MORPHINE SULFATE (MORPHINE SULFATE) INJECTION [Suspect]
     Active Substance: MORPHINE SULFATE
     Indication: ANALGESIC THERAPY
     Route: 042

REACTIONS (1)
  - Post procedural haemorrhage [None]
